FAERS Safety Report 12933476 (Version 4)
Quarter: 2019Q1

REPORT INFORMATION
  Report Type: Report from Study
  Country: None (occurrence: US)
  Receive Date: 20161111
  Receipt Date: 20190123
  Transmission Date: 20190417
  Serious: Yes (Other)
  Sender: FDA-Public Use
  Company Number: US-ABBVIE-16K-163-1775072-00

PATIENT
  Age: 57 Year
  Sex: Female

DRUGS (1)
  1. HUMIRA [Suspect]
     Active Substance: ADALIMUMAB
     Indication: ANKYLOSING SPONDYLITIS
     Route: 058
     Dates: end: 2016

REACTIONS (8)
  - Gait disturbance [Unknown]
  - Lower limb fracture [Recovering/Resolving]
  - Wound dehiscence [Unknown]
  - Ligament rupture [Recovering/Resolving]
  - Arthritis [Unknown]
  - Road traffic accident [Recovering/Resolving]
  - Postoperative wound infection [Recovered/Resolved]
  - Nodule [Unknown]

NARRATIVE: CASE EVENT DATE: 20161002
